FAERS Safety Report 25983217 (Version 1)
Quarter: 2025Q4

REPORT INFORMATION
  Report Type: Spontaneous
  Country: US (occurrence: US)
  Receive Date: 20251031
  Receipt Date: 20251031
  Transmission Date: 20260118
  Serious: Yes (Hospitalization, Other)
  Sender: MARKSANS PHARMA LIMITED
  Company Number: US-MARKSANS PHARMA LIMITED-MPL202500108

PATIENT

DRUGS (1)
  1. GABAPENTIN [Suspect]
     Active Substance: GABAPENTIN
     Indication: Poor peripheral circulation
     Dosage: UNK, QD (TAKEN ONCE A DAY AT BEDTIME)
     Route: 065
     Dates: start: 2017

REACTIONS (6)
  - Fluid retention [Unknown]
  - Renal injury [Unknown]
  - Nerve injury [Unknown]
  - Lymphatic disorder [Unknown]
  - Gait inability [Unknown]
  - Product use in unapproved indication [Unknown]
